FAERS Safety Report 9037093 (Version 3)
Quarter: 2013Q2

REPORT INFORMATION
  Report Type: Spontaneous
  Country: US (occurrence: US)
  Receive Date: 20130129
  Receipt Date: 20130412
  Transmission Date: 20140414
  Serious: Yes (Death)
  Sender: FDA-Public Use
  Company Number: US-009507513-1301USA011052

PATIENT
  Sex: Male
  Weight: 105.21 kg

DRUGS (1)
  1. ISENTRESS [Suspect]
     Indication: HIV INFECTION
     Dosage: 400 MG, BID
     Route: 048
     Dates: start: 20110526

REACTIONS (2)
  - Death [Fatal]
  - Treatment noncompliance [Unknown]
